FAERS Safety Report 7974426-3 (Version None)
Quarter: 2011Q4

REPORT INFORMATION
  Report Type: 
  Country: None (occurrence: None)
  Receive Date: 20111213
  Receipt Date: 20111207
  Transmission Date: 20120403
  Serious: No
  Sender: FDA-Public Use
  Company Number: US-B.I. PHARMACEUTICALS,INC./RIDGEFIELD-2011-BP-27666BP

PATIENT
  Sex: Male

DRUGS (11)
  1. OXYCODONE HCL [Concomitant]
  2. DILTIAZEM HCL [Concomitant]
  3. ZOCOR [Concomitant]
  4. ALBUTEROL [Concomitant]
  5. COLCHICINE [Concomitant]
  6. PRADAXA [Suspect]
     Indication: ATRIAL FIBRILLATION
     Dosage: 300 MG
     Route: 048
     Dates: start: 20110101
  7. NEXIUM [Concomitant]
  8. SIMVASTATIN [Concomitant]
  9. TOPROLOL [Concomitant]
  10. NAPROSYN [Concomitant]
  11. CARDURA [Concomitant]

REACTIONS (1)
  - LACERATION [None]
